FAERS Safety Report 20184335 (Version 1)
Quarter: 2021Q4

REPORT INFORMATION
  Report Type: Spontaneous
  Country: US (occurrence: US)
  Receive Date: 20211214
  Receipt Date: 20211214
  Transmission Date: 20220304
  Serious: No
  Sender: FDA-Public Use
  Company Number: US-SK LIFE SCIENCE, INC-SKPVG-2021-000970

PATIENT

DRUGS (1)
  1. XCOPRI [Suspect]
     Active Substance: CENOBAMATE
     Indication: Product used for unknown indication
     Dosage: SOMEWHERE BETWEEN 50 TO 150MG, QD
     Route: 065

REACTIONS (2)
  - Hypophagia [Recovered/Resolved]
  - Weight decreased [Recovered/Resolved]
